FAERS Safety Report 19906671 (Version 1)
Quarter: 2021Q4

REPORT INFORMATION
  Report Type: Spontaneous
  Country: US (occurrence: US)
  Receive Date: 20211001
  Receipt Date: 20211001
  Transmission Date: 20220303
  Serious: Yes (Hospitalization, Other)
  Sender: FDA-Public Use
  Company Number: US-PFIZER INC-202101023568

PATIENT
  Age: 84 Year
  Sex: Female
  Weight: 74.38 kg

DRUGS (1)
  1. VYNDAMAX [Suspect]
     Active Substance: TAFAMIDIS
     Dosage: 61 MG, DAILY

REACTIONS (8)
  - Fall [Unknown]
  - Acute kidney injury [Unknown]
  - Gait inability [Unknown]
  - Atrioventricular block second degree [Unknown]
  - Peripheral swelling [Unknown]
  - Fatigue [Unknown]
  - Constipation [Unknown]
  - Weight fluctuation [Unknown]

NARRATIVE: CASE EVENT DATE: 20210801
